FAERS Safety Report 7677134-1 (Version None)
Quarter: 2011Q3

REPORT INFORMATION
  Report Type: 
  Country: None (occurrence: None)
  Receive Date: 20110811
  Receipt Date: 20110809
  Transmission Date: 20111222
  Serious: Yes (Other)
  Sender: FDA-Public Use
  Company Number: BR-ABBOTT-09P-020-0602930-00

PATIENT
  Sex: Female
  Weight: 80 kg

DRUGS (38)
  1. VOLTAREN [Concomitant]
     Indication: PAIN
     Route: 048
     Dates: start: 20050726
  2. LAPTEC [Concomitant]
     Indication: CARDIAC DISORDER
     Route: 048
  3. FLUCONAZOLE [Concomitant]
     Indication: SKIN FISSURES
  4. ALBUTEROL [Concomitant]
     Indication: BRONCHITIS
     Route: 048
  5. HUMIRA [Suspect]
     Route: 058
     Dates: start: 20091014
  6. SUSTRATE [Concomitant]
     Indication: HYPERTENSION
     Route: 048
     Dates: start: 20090203
  7. LAVIQUI [Concomitant]
     Indication: DYSURIA
  8. METHOTREXATE [Concomitant]
     Indication: OSTEOARTHRITIS
     Route: 048
  9. CHLOROQUINE, DICLOFENAC [Concomitant]
     Indication: RHEUMATOID ARTHRITIS
     Route: 048
  10. PREDNISONE [Concomitant]
     Indication: PAIN
     Route: 048
     Dates: start: 19840101
  11. DIPYRONE [Concomitant]
     Indication: PAIN
     Route: 048
     Dates: start: 20050726
  12. FENOTEROL [Concomitant]
     Indication: BRONCHITIS
  13. PROMETHAZINE [Concomitant]
     Indication: SLEEP DISORDER THERAPY
     Route: 048
  14. ENALAPRIL MALEATE [Concomitant]
     Indication: HYPERTENSION
     Route: 048
     Dates: start: 19860101
  15. AMLODIPINE [Concomitant]
     Indication: HYPERTENSION
     Route: 048
  16. KETOCONAZOLE [Concomitant]
     Indication: RASH
     Route: 061
  17. ISORDIL [Concomitant]
     Indication: CHEST PAIN
     Route: 048
  18. LASIX [Concomitant]
     Indication: HYPERTENSION
     Route: 048
  19. LAVIQUI [Concomitant]
     Indication: SWELLING
     Route: 048
  20. FLUOXETINE HCL [Concomitant]
     Indication: PROPHYLAXIS
  21. FURDIDOXINA [Concomitant]
     Indication: MENTAL DISORDER
     Route: 048
  22. METHOTREXATE [Concomitant]
     Route: 048
  23. RISPERIDONE [Concomitant]
     Indication: HYPERTENSION
     Route: 048
  24. ENALAPRIL MALEATE [Concomitant]
     Indication: HYPERTENSION
     Route: 048
  25. FLUOXETINE HCL [Concomitant]
     Indication: FEELING OF RELAXATION
  26. LOSARTAN POTASSIUM [Concomitant]
     Indication: BLOOD PRESSURE INCREASED
     Route: 048
  27. FOLIC ACID [Concomitant]
     Indication: BONE DISORDER
     Route: 048
  28. DIGOXIN [Concomitant]
     Indication: CHEST PAIN
     Route: 048
  29. ALUMINUM HYDROXIDE GEL [Concomitant]
     Indication: GASTRIC DISORDER
     Route: 048
     Dates: start: 20090302
  30. CHLOROQUINE [Concomitant]
     Indication: RHEUMATOID ARTHRITIS
     Route: 048
  31. ISORDIL [Concomitant]
     Indication: DYSPNOEA
  32. EPISOL [Concomitant]
     Indication: HYPERTENSION
     Route: 048
  33. SPIRONOLACTONE [Concomitant]
     Indication: BLOOD PRESSURE
     Dates: start: 19840101
  34. HUMIRA [Suspect]
     Indication: RHEUMATOID ARTHRITIS
     Route: 058
     Dates: start: 20090227, end: 20090825
  35. ESPIROLONA [Concomitant]
     Indication: HYPERTENSION
     Route: 048
  36. OMEPRAZOLE [Concomitant]
     Indication: GASTRIC DISORDER
     Route: 048
  37. VOLTAREN [Concomitant]
     Dosage: IF PRESENTS PAIN
     Route: 048
     Dates: start: 19890101
  38. PROMETHAZINE [Concomitant]
     Indication: SEDATIVE THERAPY

REACTIONS (19)
  - ARTHRALGIA [None]
  - AGITATION [None]
  - INCREASED UPPER AIRWAY SECRETION [None]
  - ANAEMIA [None]
  - JOINT DISLOCATION [None]
  - JOINT SWELLING [None]
  - DYSPNOEA [None]
  - FORMICATION [None]
  - PAIN [None]
  - JOINT INJURY [None]
  - INJECTION SITE DISCOLOURATION [None]
  - INJECTION SITE PAIN [None]
  - HYPOAESTHESIA [None]
  - FALL [None]
  - MUSCULAR WEAKNESS [None]
  - ATROPHY [None]
  - VISUAL IMPAIRMENT [None]
  - NASAL CONGESTION [None]
  - SKIN LESION [None]
